FAERS Safety Report 4966884-3 (Version None)
Quarter: 2006Q2

REPORT INFORMATION
  Report Type: 
  Country: None (occurrence: None)
  Receive Date: 20060407
  Receipt Date: 20060103
  Transmission Date: 20061013
  Serious: Yes (Disabling)
  Sender: FDA-Public Use
  Company Number: US-MERCK-0601USA00232

PATIENT
  Sex: Female
  Weight: 54 kg

DRUGS (2)
  1. VIOXX [Suspect]
     Indication: INTERVERTEBRAL DISC DEGENERATION
     Route: 048
     Dates: start: 20040101, end: 20041020
  2. VIOXX [Suspect]
     Indication: ARTHRITIS
     Route: 048
     Dates: start: 20040101, end: 20041020

REACTIONS (12)
  - ARRHYTHMIA [None]
  - ASTHENIA [None]
  - CARDIOMEGALY [None]
  - CHEST DISCOMFORT [None]
  - DEPRESSION [None]
  - DYSPNOEA [None]
  - FATIGUE [None]
  - FIBROMYALGIA [None]
  - OBSTRUCTIVE AIRWAYS DISORDER [None]
  - OEDEMA [None]
  - PALPITATIONS [None]
  - PERICARDITIS [None]
